FAERS Safety Report 25936330 (Version 2)
Quarter: 2025Q4

REPORT INFORMATION
  Report Type: Report from Study
  Country: EU (occurrence: EU)
  Receive Date: 20251017
  Receipt Date: 20251106
  Transmission Date: 20260118
  Serious: Yes (Hospitalization)
  Sender: ABBVIE
  Company Number: EU-ABBVIE-6207475

PATIENT
  Age: 80 Year
  Sex: Female

DRUGS (3)
  1. FOSCARBIDOPA\FOSLEVODOPA [Suspect]
     Active Substance: FOSCARBIDOPA\FOSLEVODOPA
     Indication: Parkinson^s disease
     Dosage: CRN 0.18 ML/H; CR 0.20 ML/H; CRH 0.22 ML/H; ED 0.20 ML?LAST ADMIN DATE- 2025
     Route: 058
     Dates: start: 20250217
  2. FOSCARBIDOPA\FOSLEVODOPA [Suspect]
     Active Substance: FOSCARBIDOPA\FOSLEVODOPA
     Dosage: CRN 0.26 ML/H, CR 0.28 ML/H, CRH 0.31 ML/H, ED 0.20 ML?FIRST AND LAST ADMIN DATE- 2025
     Route: 058
  3. FOSCARBIDOPA\FOSLEVODOPA [Suspect]
     Active Substance: FOSCARBIDOPA\FOSLEVODOPA
     Dosage: CRN 0.32 ML/H, CR 0.36 ML/H, CRH 0.40 ML/H, ED 0.20 ML.?FIRST ADMIN DATE: 2025
     Route: 058

REACTIONS (6)
  - Dizziness [Not Recovered/Not Resolved]
  - Infusion site induration [Not Recovered/Not Resolved]
  - Dehydration [Recovering/Resolving]
  - Infusion site erythema [Not Recovered/Not Resolved]
  - Hallucination [Not Recovered/Not Resolved]
  - General physical health deterioration [Not Recovered/Not Resolved]

NARRATIVE: CASE EVENT DATE: 20250101
